FAERS Safety Report 7003731-2 (Version None)
Quarter: 2010Q3

REPORT INFORMATION
  Report Type: 
  Country: None (occurrence: None)
  Receive Date: 20100920
  Receipt Date: 20091207
  Transmission Date: 20110219
  Serious: No
  Sender: FDA-Public Use
  Company Number: US-WYE-H12059309

PATIENT
  Sex: Female

DRUGS (7)
  1. PRISTIQ [Suspect]
     Indication: DEPRESSION
     Route: 048
     Dates: start: 20091001, end: 20090101
  2. METOPROLOL SUCCINATE [Concomitant]
  3. LYRICA [Concomitant]
     Dosage: UNKNOWN
     Dates: end: 20091001
  4. POTASSIUM CHLORIDE [Concomitant]
  5. MAGNESIUM [Concomitant]
  6. LASIX [Concomitant]
  7. ZETIA [Concomitant]

REACTIONS (6)
  - CONDITION AGGRAVATED [None]
  - CONSTIPATION [None]
  - DIARRHOEA [None]
  - HALLUCINATION, AUDITORY [None]
  - HALLUCINATION, VISUAL [None]
  - HYPERTENSION [None]
